FAERS Safety Report 8068083-8 (Version None)
Quarter: 2012Q1

REPORT INFORMATION
  Report Type: 
  Country: None (occurrence: None)
  Receive Date: 20120124
  Receipt Date: 20110919
  Transmission Date: 20120608
  Serious: No
  Sender: FDA-Public Use
  Company Number: US-AMGEN-USASP2011048393

PATIENT
  Age: 69 Year
  Sex: Female

DRUGS (1)
  1. PROLIA [Suspect]
     Indication: OSTEOPOROSIS POSTMENOPAUSAL
     Dosage: UNK
     Dates: start: 20110301

REACTIONS (8)
  - INFECTION [None]
  - CYSTITIS [None]
  - HERPES ZOSTER [None]
  - NAUSEA [None]
  - SINUSITIS [None]
  - BACK PAIN [None]
  - ABDOMINAL PAIN UPPER [None]
  - ANTIBIOTIC THERAPY [None]
